FAERS Safety Report 19684527 (Version 3)
Quarter: 2021Q4

REPORT INFORMATION
  Report Type: Spontaneous
  Country: US (occurrence: US)
  Receive Date: 20210811
  Receipt Date: 20211007
  Transmission Date: 20220303
  Serious: No
  Sender: FDA-Public Use
  Company Number: US-GSKCCFUS-CASE-01131136_AE-66582

PATIENT
  Age: 57 Year
  Sex: Female

DRUGS (1)
  1. ADVAIR HFA [Suspect]
     Active Substance: FLUTICASONE PROPIONATE\SALMETEROL XINAFOATE
     Indication: Product used for unknown indication
     Dosage: 2 PUFF(S), BID, 230/21MCG
     Route: 055
     Dates: start: 202107

REACTIONS (5)
  - Dyspnoea [Recovered/Resolved]
  - Aphonia [Recovered/Resolved]
  - Productive cough [Not Recovered/Not Resolved]
  - Extra dose administered [Recovered/Resolved]
  - Product complaint [Unknown]

NARRATIVE: CASE EVENT DATE: 20210726
